FAERS Safety Report 24654682 (Version 1)
Quarter: 2024Q4

REPORT INFORMATION
  Report Type: Spontaneous
  Country: US (occurrence: US)
  Receive Date: 20241122
  Receipt Date: 20241122
  Transmission Date: 20250115
  Serious: No
  Sender: NOVO NORDISK
  Company Number: US-NOVOPROD-1204097

PATIENT
  Sex: Male

DRUGS (1)
  1. FIASP [Suspect]
     Active Substance: INSULIN ASPART
     Indication: Type 1 diabetes mellitus
     Dosage: 9 IU, QD
     Route: 058
     Dates: start: 20240109

REACTIONS (4)
  - Gastroenteritis viral [Unknown]
  - Blood glucose increased [Unknown]
  - Liquid product physical issue [Unknown]
  - Off label use [Unknown]
